FAERS Safety Report 25013272 (Version 1)
Quarter: 2025Q1

REPORT INFORMATION
  Report Type: Spontaneous
  Country: US (occurrence: None)
  Receive Date: 20250225
  Receipt Date: 20250225
  Transmission Date: 20250409
  Serious: Yes (Other)
  Sender: FDA-CTU
  Company Number: None

PATIENT
  Age: 35 Year
  Weight: 78.75 kg

DRUGS (19)
  1. TIRZEPATIDE [Suspect]
     Active Substance: TIRZEPATIDE
     Indication: Weight control
     Route: 058
     Dates: start: 20250203, end: 20250210
  2. PROPRANOLOL [Concomitant]
     Active Substance: PROPRANOLOL HYDROCHLORIDE
  3. PROTONIX [Concomitant]
     Active Substance: PANTOPRAZOLE SODIUM
  4. MIRALAX [Concomitant]
     Active Substance: POLYETHYLENE GLYCOL 3350
  5. COLACE [Concomitant]
     Active Substance: DOCUSATE SODIUM
  6. magnesium citrae [Concomitant]
  7. VITAMINS [Concomitant]
     Active Substance: VITAMINS
  8. vitamin d3 +k2 [Concomitant]
  9. VITAMIN C [Concomitant]
     Active Substance: ASCORBIC ACID
  10. BIOTIN [Concomitant]
     Active Substance: BIOTIN
  11. DIETARY SUPPLEMENT [Concomitant]
     Active Substance: DIETARY SUPPLEMENT
  12. meatmucil [Concomitant]
  13. seamoss [Concomitant]
  14. ZINC [Concomitant]
     Active Substance: ZINC
  15. turmerix [Concomitant]
  16. glucosamine chrondroitin [Concomitant]
  17. COENZYME Q10 [Concomitant]
     Active Substance: DIETARY SUPPLEMENT\UBIDECARENONE
  18. PROBIOTICS NOS [Concomitant]
     Active Substance: PROBIOTICS NOS
  19. DOCONEXENT [Concomitant]
     Active Substance: DOCONEXENT

REACTIONS (5)
  - Dyspepsia [None]
  - Constipation [None]
  - Haemorrhoids [None]
  - Anxiety [None]
  - Palpitations [None]

NARRATIVE: CASE EVENT DATE: 20250215
